FAERS Safety Report 8977956 (Version 1)
Quarter: 2012Q4

REPORT INFORMATION
  Report Type: Report from Study
  Country: CA (occurrence: CA)
  Receive Date: 20121220
  Receipt Date: 20121220
  Transmission Date: 20130627
  Serious: Yes (Other)
  Sender: FDA-Public Use
  Company Number: CA-ROCHE-1170063

PATIENT
  Age: 43 Year
  Sex: Female
  Weight: 97.1 kg

DRUGS (7)
  1. OMALIZUMAB [Suspect]
     Indication: ASTHMA
     Dosage: 300 mg, UNK
     Route: 058
     Dates: start: 20060524
  2. MEDICATION (UNK INGREDIENT) [Concomitant]
     Indication: PRODUCT USED FOR UNKNOWN INDICATION
  3. SYMBICORT [Concomitant]
  4. REACTINE (CANADA) [Concomitant]
  5. SALBUTAMOL [Concomitant]
  6. ALEVE [Concomitant]
  7. SINGULAIR [Concomitant]

REACTIONS (13)
  - Back pain [Recovered/Resolved]
  - Oedema peripheral [Unknown]
  - Influenza like illness [Recovered/Resolved]
  - Hot flush [Unknown]
  - Myalgia [Recovering/Resolving]
  - Nasopharyngitis [Recovering/Resolving]
  - Sputum discoloured [Recovering/Resolving]
  - Dyspnoea [Recovering/Resolving]
  - Wheezing [Recovering/Resolving]
  - Malaise [Unknown]
  - Injection site haemorrhage [Unknown]
  - Nausea [Recovering/Resolving]
  - Eczema [Unknown]
